FAERS Safety Report 16174513 (Version 3)
Quarter: 2019Q4

REPORT INFORMATION
  Report Type: Spontaneous
  Country: US (occurrence: US)
  Receive Date: 20190409
  Receipt Date: 20191121
  Transmission Date: 20200122
  Serious: Yes (Congenital Anomaly, Other)
  Sender: FDA-Public Use
  Company Number: US-PFIZER INC-2019148469

PATIENT
  Sex: Female

DRUGS (1)
  1. METHOTREXATE SODIUM. [Suspect]
     Active Substance: METHOTREXATE SODIUM
     Indication: ECTOPIC PREGNANCY
     Dosage: SINGLE
     Route: 064

REACTIONS (13)
  - Exophthalmos [Unknown]
  - Syndactyly [Unknown]
  - Anterior displaced anus [Unknown]
  - Dysmorphism [Unknown]
  - Atrioventricular septal defect [Unknown]
  - Limb hypoplasia congenital [Unknown]
  - Patent ductus arteriosus [Unknown]
  - Maternal exposure during pregnancy [Unknown]
  - Cleft palate [Unknown]
  - Off label use [Unknown]
  - Congenital anomaly [Unknown]
  - Foetal growth restriction [Unknown]
  - Product use in unapproved indication [Unknown]
